FAERS Safety Report 6346877-4 (Version None)
Quarter: 2009Q3

REPORT INFORMATION
  Report Type: 
  Country: None (occurrence: None)
  Receive Date: 20090909
  Receipt Date: 20090909
  Transmission Date: 20100115
  Serious: No
  Sender: FDA-Public Use
  Company Number: None

PATIENT
  Age: 57 Year
  Sex: Female
  Weight: 70.3075 kg

DRUGS (2)
  1. ZICAM COLD REMEDY GEL MATRIXX INITIATIVES [Suspect]
     Indication: NASOPHARYNGITIS
     Dosage: AS DIRECTED ON LABEL NASAL
     Route: 045
     Dates: start: 20090407, end: 20090814
  2. ZICAM COLD REMEDY SWABS MAXTRIXX INITIATIVES [Suspect]

REACTIONS (1)
  - PAROSMIA [None]
